FAERS Safety Report 6679348-6 (Version None)
Quarter: 2010Q2

REPORT INFORMATION
  Report Type: 
  Country: None (occurrence: None)
  Receive Date: 20100408
  Receipt Date: 20090616
  Transmission Date: 20101027
  Serious: No
  Sender: FDA-Public Use
  Company Number: 2009-00531

PATIENT
  Age: 53 Year
  Sex: Female
  Weight: 68.9467 kg

DRUGS (4)
  1. ZICAM ALLERGY RELIEF GEL SWABS [Suspect]
     Dosage: BID 7 DAYS
     Dates: start: 20090501, end: 20090508
  2. TAMOXIFEN CITRATE [Concomitant]
  3. LISINOPRIL [Concomitant]
  4. MULTI-VITAMIN [Concomitant]

REACTIONS (1)
  - ANOSMIA [None]
